FAERS Safety Report 24026340 (Version 1)
Quarter: 2024Q2

REPORT INFORMATION
  Report Type: Spontaneous
  Country: CN (occurrence: CN)
  Receive Date: 20240628
  Receipt Date: 20240628
  Transmission Date: 20240716
  Serious: No
  Sender: FDA-Public Use
  Company Number: CN-ROCHE-3530163

PATIENT
  Age: 68 Year
  Sex: Female

DRUGS (5)
  1. ALECTINIB [Suspect]
     Active Substance: ALECTINIB
     Indication: Non-small cell lung cancer
     Route: 048
     Dates: start: 20200417, end: 20200702
  2. CRIZOTINIB [Suspect]
     Active Substance: CRIZOTINIB
     Indication: Non-small cell lung cancer
     Route: 048
     Dates: start: 20171221, end: 20190730
  3. CRIZOTINIB [Suspect]
     Active Substance: CRIZOTINIB
     Route: 048
     Dates: start: 20200703, end: 20201127
  4. CERITINIB [Concomitant]
     Active Substance: CERITINIB
     Route: 048
     Dates: start: 20190731, end: 20200416
  5. ENSARTINIB [Concomitant]
     Active Substance: ENSARTINIB
     Route: 048
     Dates: start: 20201128, end: 20221118

REACTIONS (1)
  - Disease progression [Unknown]
